FAERS Safety Report 9697690 (Version 1)
Quarter: 2013Q4

REPORT INFORMATION
  Report Type: Spontaneous
  Country: US (occurrence: US)
  Receive Date: 20131120
  Receipt Date: 20131120
  Transmission Date: 20140711
  Serious: No
  Sender: FDA-Public Use
  Company Number: US-PFIZER INC-2013328341

PATIENT
  Age: 77 Year
  Sex: Male

DRUGS (4)
  1. TIKOSYN [Suspect]
     Indication: ARRHYTHMIA
     Dosage: 0.25 MG, 2X/DAY
  2. PRADAXA [Concomitant]
     Dosage: 150 MG, 2X/DAY
  3. LISINOPRIL [Concomitant]
     Dosage: 20 MG, DAILY
  4. ASPIRIN [Concomitant]
     Dosage: UNK, DAILY

REACTIONS (2)
  - Dental caries [Unknown]
  - Tooth infection [Unknown]
